FAERS Safety Report 8173345 (Version 6)
Quarter: 2014Q1

REPORT INFORMATION
  Report Type: Spontaneous
  Country: US (occurrence: US)
  Receive Date: 20111007
  Receipt Date: 20140117
  Transmission Date: 20141002
  Serious: Yes (Hospitalization, Other)
  Sender: FDA-Public Use
  Company Number: US-ASTRAZENECA-2009UW05597

PATIENT
  Age: 58 Year
  Sex: Female
  Weight: 79.4 kg

DRUGS (13)
  1. SYMBICORT PMDI [Suspect]
     Indication: ASTHMA
     Dosage: 80/4.5 MCG, TWO PUFFS, UNKNOWN FREQUENCY
     Route: 055
  2. SYMBICORT PMDI [Suspect]
     Indication: ASTHMA
     Dosage: 80/4.5 MCG, TWO PUFFS, BID
     Route: 055
  3. NEXIUM [Suspect]
     Indication: GASTROOESOPHAGEAL REFLUX DISEASE
     Route: 048
  4. NEXIUM [Suspect]
     Indication: BARRETT^S OESOPHAGUS
     Route: 048
  5. SEROQUEL [Suspect]
     Indication: INAPPROPRIATE AFFECT
     Route: 048
     Dates: start: 2007
  6. SEROQUEL [Suspect]
     Indication: INAPPROPRIATE AFFECT
     Route: 048
  7. SEROQUEL [Suspect]
     Indication: INAPPROPRIATE AFFECT
     Route: 048
  8. SEROQUEL [Suspect]
     Indication: INAPPROPRIATE AFFECT
     Route: 048
  9. LISINOPRIL [Concomitant]
  10. XANAX [Concomitant]
  11. ADVAIR [Concomitant]
  12. ALBUTEROL [Concomitant]
  13. ANTI INFLAMMATORY [Concomitant]

REACTIONS (24)
  - Liver disorder [Unknown]
  - Gastric disorder [Unknown]
  - Chronic obstructive pulmonary disease [Unknown]
  - Suicidal ideation [Unknown]
  - Drug withdrawal syndrome [Unknown]
  - Weight increased [Unknown]
  - Pain [Unknown]
  - Agitation [Unknown]
  - Aggression [Unknown]
  - Visual impairment [Unknown]
  - Memory impairment [Unknown]
  - Headache [Unknown]
  - Mood swings [Unknown]
  - Malaise [Unknown]
  - Asthma [Unknown]
  - Barrett^s oesophagus [Unknown]
  - Haemoptysis [Unknown]
  - Aphagia [Unknown]
  - Ulcer [Unknown]
  - Anxiety [Unknown]
  - Hearing impaired [Unknown]
  - Aggression [Unknown]
  - Drug dose omission [Unknown]
  - Intentional drug misuse [Unknown]
